FAERS Safety Report 8416204-7 (Version None)
Quarter: 2012Q2

REPORT INFORMATION
  Report Type: 
  Country: None (occurrence: None)
  Receive Date: 20120606
  Receipt Date: 20120528
  Transmission Date: 20120825
  Serious: Yes (Other)
  Sender: FDA-Public Use
  Company Number: ES-SANOFI-AVENTIS-2012SA038370

PATIENT
  Age: 58 Year
  Sex: Male
  Weight: 96 kg

DRUGS (9)
  1. CAFINITRINA [Concomitant]
     Dates: start: 20120516, end: 20120516
  2. PLAVIX [Suspect]
     Route: 048
     Dates: start: 20120517, end: 20120518
  3. ENOXAPARIN SODIUM [Concomitant]
     Route: 058
     Dates: start: 20120517, end: 20120517
  4. PLAVIX [Suspect]
     Indication: ACUTE CORONARY SYNDROME
     Route: 048
     Dates: start: 20120516, end: 20120516
  5. BLINDED THERAPY [Suspect]
     Indication: ACUTE CORONARY SYNDROME
     Route: 042
     Dates: start: 20120517, end: 20120517
  6. ASPIRIN [Suspect]
     Indication: ACUTE CORONARY SYNDROME
     Route: 048
     Dates: start: 20120516, end: 20120516
  7. ENOXAPARIN SODIUM [Concomitant]
     Route: 058
     Dates: start: 20120518, end: 20120520
  8. PLAVIX [Suspect]
     Route: 048
     Dates: start: 20120517, end: 20120517
  9. ASPIRIN [Suspect]
     Route: 048
     Dates: start: 20120517

REACTIONS (1)
  - COAGULOPATHY [None]
